FAERS Safety Report 13311684 (Version 4)
Quarter: 2022Q2

REPORT INFORMATION
  Report Type: Spontaneous
  Country: US (occurrence: US)
  Receive Date: 20170309
  Receipt Date: 20220629
  Transmission Date: 20220720
  Serious: No
  Sender: FDA-Public Use
  Company Number: US-JNJFOC-20170216659

PATIENT
  Sex: Male

DRUGS (13)
  1. RISPERDAL [Suspect]
     Active Substance: RISPERIDONE
     Indication: Product used for unknown indication
     Route: 048
     Dates: start: 20030707, end: 20031103
  2. RISPERDAL [Suspect]
     Active Substance: RISPERIDONE
     Route: 048
     Dates: start: 20031110, end: 200806
  3. RISPERDAL [Suspect]
     Active Substance: RISPERIDONE
     Route: 048
     Dates: start: 20080804, end: 20090904
  4. INVEGA [Suspect]
     Active Substance: PALIPERIDONE
     Indication: Attention deficit hyperactivity disorder
     Route: 048
     Dates: start: 20030707, end: 20031103
  5. INVEGA [Suspect]
     Active Substance: PALIPERIDONE
     Indication: Insomnia
     Route: 048
     Dates: start: 20031110, end: 200806
  6. INVEGA [Suspect]
     Active Substance: PALIPERIDONE
     Indication: Depression
     Route: 048
     Dates: start: 20080804, end: 20090904
  7. INVEGA [Suspect]
     Active Substance: PALIPERIDONE
     Indication: Anxiety
     Route: 048
     Dates: start: 20130318
  8. INVEGA [Suspect]
     Active Substance: PALIPERIDONE
     Indication: Agoraphobia
  9. RISPERIDONE [Suspect]
     Active Substance: RISPERIDONE
     Indication: Agoraphobia
     Route: 065
     Dates: start: 20140210, end: 20140715
  10. RISPERIDONE [Suspect]
     Active Substance: RISPERIDONE
     Indication: Attention deficit hyperactivity disorder
  11. RISPERIDONE [Suspect]
     Active Substance: RISPERIDONE
     Indication: Insomnia
  12. RISPERIDONE [Suspect]
     Active Substance: RISPERIDONE
     Indication: Depression
  13. RISPERIDONE [Suspect]
     Active Substance: RISPERIDONE
     Indication: Anxiety

REACTIONS (3)
  - Emotional distress [Unknown]
  - Gynaecomastia [Unknown]
  - Treatment noncompliance [Unknown]
